FAERS Safety Report 11256183 (Version 3)
Quarter: 2016Q1

REPORT INFORMATION
  Report Type: Report from Study
  Country: US (occurrence: US)
  Receive Date: 20150709
  Receipt Date: 20160202
  Transmission Date: 20160525
  Serious: Yes (Hospitalization)
  Sender: FDA-Public Use
  Company Number: US-ROCHE-ITM201505IM016286

PATIENT
  Age: 69 Year
  Sex: Female
  Weight: 59.96 kg

DRUGS (16)
  1. BLINDED LEBRIKIZUMAB [Suspect]
     Active Substance: LEBRIKIZUMAB
     Indication: IDIOPATHIC PULMONARY FIBROSIS
     Dosage: ON 12/FEB/2015, THE PATIENT RECEIVED THE LAST DOSE PRIOR TO ONSET OF THE EVENTS.
     Route: 058
     Dates: start: 20140311
  2. FOSAMAX [Concomitant]
     Active Substance: ALENDRONATE SODIUM
     Indication: OSTEOPOROSIS
     Route: 048
     Dates: start: 2006
  3. PREDNISONE. [Concomitant]
     Active Substance: PREDNISONE
  4. FISH OIL [Concomitant]
     Active Substance: FISH OIL
     Indication: VITAMIN SUPPLEMENTATION
     Route: 048
     Dates: start: 201307
  5. HALLS COUGH DROPS [Concomitant]
     Indication: COUGH
     Route: 048
  6. OXYGEN. [Concomitant]
     Active Substance: OXYGEN
     Dosage: BASELINE IS 4 LITERS
     Route: 045
  7. PIRFENIDONE [Suspect]
     Active Substance: PIRFENIDONE
     Dosage: SUBJECT SUPPLY
     Route: 048
     Dates: start: 20150228, end: 20150304
  8. PROTONIX (UNITED STATES) [Concomitant]
     Indication: GASTROOESOPHAGEAL REFLUX DISEASE
     Route: 048
     Dates: start: 20150306, end: 20150307
  9. PRAVACHOL [Concomitant]
     Active Substance: PRAVASTATIN SODIUM
     Indication: HYPERLIPIDAEMIA
     Route: 048
     Dates: start: 2012
  10. FLUTICASONE PROPIONATE. [Concomitant]
     Active Substance: FLUTICASONE PROPIONATE
     Indication: UPPER-AIRWAY COUGH SYNDROME
     Dosage: 1 SPRAY IN EACH NOSTRIL
     Route: 055
     Dates: start: 20150106
  11. TYLENOL [Concomitant]
     Active Substance: ACETAMINOPHEN
     Indication: CHEST PAIN
     Route: 048
     Dates: start: 20150304, end: 20150306
  12. ZOFRAN [Concomitant]
     Active Substance: ONDANSETRON HYDROCHLORIDE
     Indication: PROPHYLAXIS OF NAUSEA AND VOMITING
     Route: 048
     Dates: start: 20150304, end: 20150304
  13. HEPARIN [Concomitant]
     Active Substance: HEPARIN SODIUM
     Indication: THROMBOSIS PROPHYLAXIS
     Route: 058
     Dates: start: 20150304, end: 20150306
  14. PIRFENIDONE [Suspect]
     Active Substance: PIRFENIDONE
     Indication: IDIOPATHIC PULMONARY FIBROSIS
     Dosage: SUBJECT SUPPLY
     Route: 048
     Dates: start: 20150221, end: 20150227
  15. PROZAC [Concomitant]
     Active Substance: FLUOXETINE HYDROCHLORIDE
     Indication: DEPRESSION
     Route: 048
     Dates: start: 1996
  16. VITAMIN B12 [Concomitant]
     Active Substance: CYANOCOBALAMIN
     Indication: NUTRITIONAL SUPPLEMENTATION
     Route: 048
     Dates: start: 201307

REACTIONS (1)
  - Idiopathic pulmonary fibrosis [Recovered/Resolved with Sequelae]

NARRATIVE: CASE EVENT DATE: 20150304
